FAERS Safety Report 4750903-3 (Version None)
Quarter: 2005Q3

REPORT INFORMATION
  Report Type: 
  Country: None (occurrence: None)
  Receive Date: 20050818
  Receipt Date: 20050805
  Transmission Date: 20060218
  Serious: Yes (Other)
  Sender: FDA-Public Use
  Company Number: 2005091059

PATIENT
  Age: 7 Year
  Sex: Male
  Weight: 19.0511 kg

DRUGS (6)
  1. ZYRTEC [Suspect]
     Indication: MULTIPLE ALLERGIES
     Dosage: 5 MG (5 MG, 1 IN 1 D), GATROSTOMY TUBE
     Dates: start: 20040101, end: 20050617
  2. NASONEX [Concomitant]
  3. LAMICTAL [Concomitant]
  4. CLORAZEPATE (CLORAZEPATE DIPOTASSIUM) [Concomitant]
  5. DIASTAT [Concomitant]
  6. SUDAFED 12 HOUR [Concomitant]

REACTIONS (8)
  - CONDITION AGGRAVATED [None]
  - CONVULSION [None]
  - FATIGUE [None]
  - INFLUENZA [None]
  - NASOPHARYNGITIS [None]
  - STAPHYLOCOCCAL INFECTION [None]
  - SURGICAL PROCEDURE REPEATED [None]
  - VAGAL NERVE STIMULATOR IMPLANTATION [None]
